FAERS Safety Report 7411891-4 (Version None)
Quarter: 2011Q2

REPORT INFORMATION
  Report Type: 
  Country: None (occurrence: None)
  Receive Date: 20110405
  Receipt Date: 20110317
  Transmission Date: 20111010
  Serious: Yes (Death)
  Sender: FDA-Public Use
  Company Number: 2011P1005299

PATIENT
  Age: 54 Year
  Sex: Male

DRUGS (6)
  1. OXYCONTIN [Suspect]
     Dosage: PO
     Route: 048
  2. OXYCONTIN [Suspect]
     Dosage: PARN
     Route: 051
  3. COCAINE (NO PREF. NAME) [Suspect]
     Dosage: PO
     Route: 048
  4. COCAINE (NO PREF. NAME) [Suspect]
     Dosage: PARN
     Route: 051
  5. ACETAMINOPHEN AND HYDROCODONE BITARTRATE [Suspect]
     Dosage: PO
     Route: 048
  6. ACETAMINOPHEN AND HYDROCODONE BITARTRATE [Suspect]
     Dosage: PARN
     Route: 051

REACTIONS (1)
  - DRUG ABUSE [None]
